FAERS Safety Report 19577913 (Version 7)
Quarter: 2025Q2

REPORT INFORMATION
  Report Type: Report from Study
  Country: US (occurrence: US)
  Receive Date: 20210719
  Receipt Date: 20250605
  Transmission Date: 20250717
  Serious: Yes (Other)
  Sender: JAZZ
  Company Number: US-GW PHARMA-202107USGW03427

PATIENT
  Sex: Female
  Weight: 80 kg

DRUGS (7)
  1. EPIDIOLEX [Suspect]
     Active Substance: CANNABIDIOL
     Indication: Seizure
     Dosage: 1.15 MG/KG/DAY, 30 MILLIGRAM, TID (FIRST SHIPPED ON 29 JUL 2020)  ORAL
     Route: 048
  2. EPIDIOLEX [Suspect]
     Active Substance: CANNABIDIOL
     Indication: Illness
     Dosage: 0.2 MILLILITER, TID
     Route: 048
  3. EPIDIOLEX [Suspect]
     Active Substance: CANNABIDIOL
     Dosage: 0.2 MILLILITER, BID
     Route: 048
  4. EPIDIOLEX [Suspect]
     Active Substance: CANNABIDIOL
     Dosage: 0.2 MILLILITER (20 MG), TID
     Route: 048
  5. EPIDIOLEX [Suspect]
     Active Substance: CANNABIDIOL
     Dosage: 20 MILLIGRAM, TID
     Route: 048
  6. ONFI [Concomitant]
     Active Substance: CLOBAZAM
     Indication: Product used for unknown indication
  7. DILANTIN-125 [Concomitant]
     Active Substance: PHENYTOIN
     Indication: Product used for unknown indication
     Dates: start: 20210323

REACTIONS (14)
  - Seizure [Recovered/Resolved]
  - Seizure [Recovered/Resolved]
  - Brain operation [Unknown]
  - Seizure [Unknown]
  - Depression [Unknown]
  - Somnolence [Unknown]
  - Headache [Unknown]
  - Fatigue [Unknown]
  - Cerebral disorder [Unknown]
  - Off label use [Unknown]
  - Intentional dose omission [Unknown]
  - Intentional product use issue [Unknown]
  - Product dispensing error [Unknown]
  - Product label issue [Unknown]

NARRATIVE: CASE EVENT DATE: 20210101
